FAERS Safety Report 6290685-X (Version None)
Quarter: 2009Q3

REPORT INFORMATION
  Report Type: 
  Country: None (occurrence: None)
  Receive Date: 20090730
  Receipt Date: 20090724
  Transmission Date: 20100115
  Serious: No
  Sender: FDA-Public Use
  Company Number: US-B.I. PHARMACEUTICALS,INC./RIDGEFIELD-2009-BP-08837BP

PATIENT
  Age: 75 Year
  Sex: Female

DRUGS (5)
  1. MIRAPEX [Suspect]
     Indication: PARKINSONISM
     Dosage: 1.5 MG
     Route: 048
     Dates: start: 20070701, end: 20090719
  2. SYMMETREL [Concomitant]
  3. SINEMET [Concomitant]
  4. PRILOSEC [Concomitant]
  5. SYNTHROID [Concomitant]

REACTIONS (2)
  - ABNORMAL DREAMS [None]
  - HALLUCINATIONS, MIXED [None]
